FAERS Safety Report 7013253-0 (Version None)
Quarter: 2010Q3

REPORT INFORMATION
  Report Type: 
  Country: None (occurrence: None)
  Receive Date: 20100924
  Receipt Date: 20100916
  Transmission Date: 20110219
  Serious: Yes (Other)
  Sender: FDA-Public Use
  Company Number: US-PERRIGO-10US013065

PATIENT
  Sex: Female
  Weight: 53.515 kg

DRUGS (1)
  1. IBUPROFEN [Suspect]
     Indication: PRURITUS
     Dosage: 200 MG, SINGLE
     Route: 048
     Dates: start: 20100913, end: 20100913

REACTIONS (2)
  - LIP SWELLING [None]
  - SWELLING FACE [None]
